FAERS Safety Report 15288822 (Version 1)
Quarter: 2018Q3

REPORT INFORMATION
  Report Type: Spontaneous
  Country: US (occurrence: US)
  Receive Date: 20180802
  Receipt Date: 20180802
  Transmission Date: 20181010
  Serious: Yes (Hospitalization)
  Sender: FDA-Public Use
  Company Number: None

PATIENT
  Age: 10 Week
  Sex: Male
  Weight: 4 kg

DRUGS (1)
  1. SYNAGIS [Suspect]
     Active Substance: PALIVIZUMAB
     Indication: PREMATURE BABY
     Dosage: ?          OTHER FREQUENCY:EVERY 28 DAYS;?
     Route: 030
     Dates: start: 20180711

REACTIONS (7)
  - Nasal disorder [None]
  - Conjunctivitis [None]
  - Staphylococcus test positive [None]
  - Rash [None]
  - Stevens-Johnson syndrome [None]
  - Oedema [None]
  - Swelling [None]

NARRATIVE: CASE EVENT DATE: 20180712
